FAERS Safety Report 25263482 (Version 1)
Quarter: 2025Q2

REPORT INFORMATION
  Report Type: Spontaneous
  Country: GB (occurrence: GB)
  Receive Date: 20250502
  Receipt Date: 20250502
  Transmission Date: 20250716
  Serious: Yes (Other)
  Sender: CSL BEHRING
  Company Number: None

PATIENT
  Age: 77 Year
  Sex: Male

DRUGS (1)
  1. ALBUMIN HUMAN [Suspect]
     Active Substance: ALBUMIN HUMAN
     Route: 065
     Dates: start: 20250414, end: 20250414

REACTIONS (9)
  - Pulmonary congestion [Unknown]
  - Acute respiratory failure [Unknown]
  - Hypersensitivity [Recovered/Resolved]
  - Oxygen saturation decreased [Unknown]
  - Wheezing [Unknown]
  - Crepitations [Unknown]
  - Respiratory rate increased [Unknown]
  - Blood pressure increased [Unknown]
  - Rash erythematous [Unknown]

NARRATIVE: CASE EVENT DATE: 20250414
